FAERS Safety Report 24689479 (Version 2)
Quarter: 2024Q4

REPORT INFORMATION
  Report Type: Spontaneous
  Country: US (occurrence: US)
  Receive Date: 20241203
  Receipt Date: 20241209
  Transmission Date: 20250114
  Serious: No
  Sender: ROCHE
  Company Number: US-ROCHE-10000141319

PATIENT
  Age: 20 Year
  Sex: Female
  Weight: 45.36 kg

DRUGS (3)
  1. XOLAIR [Suspect]
     Active Substance: OMALIZUMAB
     Indication: Idiopathic urticaria
     Dosage: OR ONCE EVERY 4 WEEKS, ALWAYS ON A SUNDAY
     Route: 058
     Dates: start: 202408
  2. SPIRONOLACTONE [Concomitant]
     Active Substance: SPIRONOLACTONE
     Indication: Acne
     Dosage: PILL
     Route: 048
  3. JUNEL FE 1/20 [Concomitant]
     Active Substance: ETHINYL ESTRADIOL\NORETHINDRONE ACETATE
     Indication: Contraception
     Dosage: AT NIGHT 8 PM
     Route: 048

REACTIONS (6)
  - Device defective [Unknown]
  - Wrong technique in device usage process [Unknown]
  - Product quality issue [Unknown]
  - Device leakage [Unknown]
  - No adverse event [Unknown]
  - Occupational exposure to product [Unknown]

NARRATIVE: CASE EVENT DATE: 20241121
